FAERS Safety Report 5900854-3 (Version None)
Quarter: 2008Q3

REPORT INFORMATION
  Report Type: 
  Country: None (occurrence: None)
  Receive Date: 20080924
  Receipt Date: 20080916
  Transmission Date: 20090109
  Serious: Yes (Life-Threatening, Hospitalization)
  Sender: FDA-Public Use
  Company Number: 000996

PATIENT
  Age: 4 Year
  Sex: Male

DRUGS (6)
  1. BUSULFEX [Suspect]
     Indication: STEM CELL TRANSPLANT
     Dosage: 8.1 ML; 10.8 ML, DAILY DOSE; INTRAVENOUS; 2.7 ML, DAILY DOSE; INTRAVENOUS
     Route: 042
     Dates: start: 20070731, end: 20070731
  2. BUSULFEX [Suspect]
     Indication: STEM CELL TRANSPLANT
     Dosage: 8.1 ML; 10.8 ML, DAILY DOSE; INTRAVENOUS; 2.7 ML, DAILY DOSE; INTRAVENOUS
     Route: 042
     Dates: start: 20070801, end: 20070802
  3. BUSULFEX [Suspect]
     Indication: STEM CELL TRANSPLANT
     Dosage: 8.1 ML; 10.8 ML, DAILY DOSE; INTRAVENOUS; 2.7 ML, DAILY DOSE; INTRAVENOUS
     Route: 042
     Dates: start: 20070804, end: 20070804
  4. MELPHALAN (MELPHALAN) [Concomitant]
  5. PHENYTOIN [Concomitant]
  6. FILGASTRIM (FILGASTRIM) [Concomitant]

REACTIONS (9)
  - BLOOD POTASSIUM DECREASED [None]
  - BONE MARROW TRANSPLANT REJECTION [None]
  - DYSPHAGIA [None]
  - HAEMODIALYSIS [None]
  - HEPATIC CIRRHOSIS [None]
  - MALAISE [None]
  - MUCOSAL EROSION [None]
  - STOMATITIS [None]
  - VENOOCCLUSIVE LIVER DISEASE [None]
